FAERS Safety Report 6276990-1 (Version None)
Quarter: 2009Q3

REPORT INFORMATION
  Report Type: 
  Country: None (occurrence: None)
  Receive Date: 20090722
  Receipt Date: 20081113
  Transmission Date: 20100115
  Serious: No
  Sender: FDA-Public Use
  Company Number: US-BRISTOL-MYERS SQUIBB COMPANY-14406151

PATIENT
  Age: 83 Year
  Sex: Female
  Weight: 64 kg

DRUGS (7)
  1. COUMADIN [Suspect]
     Indication: ATRIAL FIBRILLATION
     Dosage: 10 MG FOR 3DAYS + 7.5MG FOR 2DAYS
  2. LOVENOX [Concomitant]
  3. CARDIZEM [Concomitant]
  4. LASIX [Concomitant]
  5. DETROL [Concomitant]
  6. K-DUR [Concomitant]
  7. LEVAQUIN [Concomitant]

REACTIONS (1)
  - INTERNATIONAL NORMALISED RATIO DECREASED [None]
